FAERS Safety Report 10588650 (Version 1)
Quarter: 2014Q4

REPORT INFORMATION
  Report Type: Report from Study
  Country: BR (occurrence: BR)
  Receive Date: 20141117
  Receipt Date: 20141117
  Transmission Date: 20150529
  Serious: Yes (Other)
  Sender: FDA-Public Use
  Company Number: PHHY2014BR149540

PATIENT
  Sex: Female

DRUGS (1)
  1. ACLASTA [Suspect]
     Active Substance: ZOLEDRONIC ACID
     Indication: PRODUCT USED FOR UNKNOWN INDICATION
     Dosage: UNK
     Route: 065

REACTIONS (8)
  - Yellow skin [Unknown]
  - Hair disorder [Unknown]
  - Multi-vitamin deficiency [Unknown]
  - Diabetes mellitus [Unknown]
  - Refractory cytopenia with unilineage dysplasia [Unknown]
  - Alopecia [Unknown]
  - Asthenia [Unknown]
  - Calcium deficiency [Unknown]
